FAERS Safety Report 13393672 (Version 1)
Quarter: 2017Q1

REPORT INFORMATION
  Report Type: Spontaneous
  Country: PT (occurrence: PT)
  Receive Date: 20170331
  Receipt Date: 20170331
  Transmission Date: 20170429
  Serious: Yes (Hospitalization)
  Sender: FDA-Public Use
  Company Number: PT-VERNALIS THERAPEUTICS, INC.-2017VRN00010

PATIENT
  Age: 64 Year
  Sex: Male

DRUGS (2)
  1. OMEPRAZOLE. [Concomitant]
     Active Substance: OMEPRAZOLE
  2. AMOXICILLIN. [Suspect]
     Active Substance: AMOXICILLIN
     Indication: SINUS DISORDER
     Dosage: UNK

REACTIONS (1)
  - Myoclonic epilepsy [Recovered/Resolved]
